FAERS Safety Report 6259872-0 (Version None)
Quarter: 2009Q3

REPORT INFORMATION
  Report Type: 
  Country: None (occurrence: None)
  Receive Date: 20090708
  Receipt Date: 20090625
  Transmission Date: 20100115
  Serious: Yes (Death, Other)
  Sender: FDA-Public Use
  Company Number: US-TYCO HEALTHCARE/MALLINCKRODT-T200800679

PATIENT

DRUGS (9)
  1. OPTIMARK [Suspect]
     Indication: ANGIOGRAM
     Dosage: UNK, SINGLE
     Dates: start: 20050314, end: 20050314
  2. OPTIMARK [Suspect]
     Indication: NUCLEAR MAGNETIC RESONANCE IMAGING BRAIN
     Dosage: UNK, SINGLE
     Dates: start: 20050422, end: 20050422
  3. OPTIMARK [Suspect]
     Indication: NUCLEAR MAGNETIC RESONANCE IMAGING
     Dosage: UNK
     Dates: start: 20050505, end: 20050505
  4. MAVIK [Concomitant]
     Indication: BLOOD PRESSURE
     Dosage: 4 MG, BID
     Dates: start: 20050315
  5. COREG [Concomitant]
     Indication: CARDIAC DISORDER
     Dosage: 25 MG, BID
     Dates: start: 20050315
  6. CLONIDINE [Concomitant]
     Indication: CARDIAC DISORDER
     Dosage: .2 MG, BID
     Dates: start: 20050315
  7. PHOSLO [Concomitant]
     Indication: RENAL DISORDER
     Dosage: 3 TABLETS WITH MEALS
  8. NEURONTIN [Concomitant]
     Dosage: 100 MG, QD
  9. KOSURBIDE MN [Concomitant]
     Indication: CARDIAC DISORDER
     Dosage: 30 MG, UNK
     Dates: start: 20080315

REACTIONS (3)
  - CARDIO-RESPIRATORY ARREST [None]
  - NEPHROGENIC SYSTEMIC FIBROSIS [None]
  - OFF LABEL USE [None]
